FAERS Safety Report 5118855-4 (Version None)
Quarter: 2006Q3

REPORT INFORMATION
  Report Type: 
  Country: None (occurrence: None)
  Receive Date: 20060927
  Receipt Date: 20060911
  Transmission Date: 20061208
  Serious: Yes (Other)
  Sender: FDA-Public Use
  Company Number: 2006111220

PATIENT
  Age: 49 Year
  Sex: Male

DRUGS (1)
  1. DILANTIN [Suspect]
     Indication: CONVULSION PROPHYLAXIS

REACTIONS (10)
  - DRUG ERUPTION [None]
  - EAR HAEMORRHAGE [None]
  - EPISTAXIS [None]
  - HYPERSENSITIVITY [None]
  - INFLUENZA [None]
  - MOUTH HAEMORRHAGE [None]
  - ONYCHOMADESIS [None]
  - STEVENS-JOHNSON SYNDROME [None]
  - TOOTH LOSS [None]
  - TOXIC EPIDERMAL NECROLYSIS [None]
